FAERS Safety Report 5694386-8 (Version None)
Quarter: 2008Q2

REPORT INFORMATION
  Report Type: 
  Country: None (occurrence: None)
  Receive Date: 20080402
  Receipt Date: 20080317
  Transmission Date: 20081010
  Serious: Yes (Other)
  Sender: FDA-Public Use
  Company Number: JPI-P-003242

PATIENT
  Sex: Male

DRUGS (5)
  1. LUVOX [Suspect]
     Indication: DEPRESSION
     Dosage: 75 MG, D, ORAL; 25 MG, D, ORAL
     Route: 048
     Dates: start: 20060101, end: 20080101
  2. LUVOX [Suspect]
     Indication: DEPRESSION
     Dosage: 75 MG, D, ORAL; 25 MG, D, ORAL
     Route: 048
     Dates: start: 20080101
  3. LEVODOPA/BENSERAZIDE (LEVODEOPA W/BENSERAZIDE/) [Concomitant]
  4. AMANTADINE HCL [Concomitant]
  5. DONEPEZIL HCL [Concomitant]

REACTIONS (3)
  - DEMENTIA [None]
  - PARKINSONIAN GAIT [None]
  - TREMOR [None]
